FAERS Safety Report 9532779 (Version 2)
Quarter: 2013Q3

REPORT INFORMATION
  Report Type: Spontaneous
  Country: US (occurrence: US)
  Receive Date: 20130918
  Receipt Date: 20130918
  Transmission Date: 20140515
  Serious: Yes (Other)
  Sender: FDA-Public Use
  Company Number: US-NAPPMUNDI-USA-2011-0075918

PATIENT
  Age: 37 Year
  Sex: Female
  Weight: 65.76 kg

DRUGS (9)
  1. BUTRANS [Suspect]
     Indication: BACK PAIN
     Dosage: 20 MCG, Q1H
     Route: 062
     Dates: start: 20110921, end: 20111006
  2. NEURONTIN [Concomitant]
     Indication: PAIN
     Dosage: 300 MG, TID
     Route: 048
  3. NEURONTIN [Concomitant]
     Indication: DEPRESSION
  4. NEURONTIN [Concomitant]
     Indication: ANXIETY
  5. ADVIL                              /00109201/ [Concomitant]
     Indication: PAIN
     Dosage: 800 MG, TID PRN
  6. METHOCARBAMOL [Concomitant]
     Indication: MUSCLE SPASMS
     Dosage: 750 MG, QID PRN
  7. MOTRIN [Concomitant]
     Indication: BACK PAIN
     Dosage: 800 MG, TID
  8. MOTRIN [Concomitant]
     Indication: ARTHRALGIA
  9. ROBAXIN [Concomitant]
     Dosage: 750 UNK, UNK

REACTIONS (19)
  - Blood pressure increased [Recovered/Resolved]
  - Headache [Recovered/Resolved]
  - Panic attack [Unknown]
  - Unevaluable event [Unknown]
  - Palpitations [Unknown]
  - Extra dose administered [Recovered/Resolved]
  - Migraine [Not Recovered/Not Resolved]
  - Application site erythema [Not Recovered/Not Resolved]
  - Pain [Unknown]
  - Inadequate analgesia [Unknown]
  - Drug ineffective [Unknown]
  - Application site bruise [Unknown]
  - Hot flush [Unknown]
  - Dizziness [Unknown]
  - Impaired work ability [Unknown]
  - Arthralgia [Unknown]
  - Fatigue [Unknown]
  - Somnolence [Unknown]
  - Drug hypersensitivity [Unknown]
